FAERS Safety Report 20495572 (Version 1)
Quarter: 2022Q1

REPORT INFORMATION
  Report Type: Spontaneous
  Country: GB (occurrence: GB)
  Receive Date: 20220221
  Receipt Date: 20220221
  Transmission Date: 20220424
  Serious: Yes (Other)
  Sender: FDA-Public Use
  Company Number: GB-VIRTUS PHARMACEUTICALS, LLC-2022VTS00006

PATIENT
  Age: 77 Year
  Sex: Female

DRUGS (1)
  1. TRANEXAMIC ACID [Suspect]
     Active Substance: TRANEXAMIC ACID
     Indication: Haematuria
     Dosage: 1 G, 3X/DAY
     Route: 065

REACTIONS (2)
  - Ureteric perforation [Recovered/Resolved]
  - Thrombosis [Recovered/Resolved]
